FAERS Safety Report 19868752 (Version 1)
Quarter: 2021Q3

REPORT INFORMATION
  Report Type: Spontaneous
  Country: CN (occurrence: CN)
  Receive Date: 20210921
  Receipt Date: 20210921
  Transmission Date: 20211014
  Serious: Yes (Death)
  Sender: FDA-Public Use
  Company Number: CN-BAXTER-2021BAX029156

PATIENT
  Age: 20 Year
  Sex: Male
  Weight: 60 kg

DRUGS (3)
  1. CHUJIE (DAUNORUBICIN HYDROCHLORIDE) [Suspect]
     Active Substance: DAUNORUBICIN HYDROCHLORIDE
     Indication: CHEMOTHERAPY
     Route: 041
     Dates: start: 20210815, end: 20210817
  2. ENDOXAN [Suspect]
     Active Substance: CYCLOPHOSPHAMIDE
     Indication: CHEMOTHERAPY
     Route: 041
     Dates: start: 20210815, end: 20210815
  3. XIAIKE [Suspect]
     Active Substance: VINDESINE
     Indication: CHEMOTHERAPY
     Route: 041
     Dates: start: 20210821, end: 20210822

REACTIONS (2)
  - Myelosuppression [Fatal]
  - Septic shock [Fatal]

NARRATIVE: CASE EVENT DATE: 20210824
